FAERS Safety Report 20691040 (Version 1)
Quarter: 2022Q2

REPORT INFORMATION
  Report Type: Report from Study
  Country: TR (occurrence: TR)
  Receive Date: 20220408
  Receipt Date: 20220408
  Transmission Date: 20220721
  Serious: Yes (Hospitalization)
  Sender: FDA-Public Use
  Company Number: TR-ABBVIE-22P-161-4274154-00

PATIENT
  Age: 24 Year
  Sex: Male
  Weight: 73 kg

DRUGS (9)
  1. VENETOCLAX [Suspect]
     Active Substance: VENETOCLAX
     Indication: Acute myeloid leukaemia
     Dosage: DAYS 1 -21
     Route: 048
     Dates: start: 20211216, end: 20220206
  2. VENETOCLAX [Suspect]
     Active Substance: VENETOCLAX
     Dosage: DAYS 1 -21
     Route: 048
     Dates: start: 20220310
  3. AZACITIDINE [Suspect]
     Active Substance: AZACITIDINE
     Indication: Acute myeloid leukaemia
     Dosage: DAYS 1 - 14
     Route: 048
     Dates: start: 20211216, end: 20220130
  4. AZACITIDINE [Suspect]
     Active Substance: AZACITIDINE
     Dosage: DAYS 1 - 14
     Route: 048
     Dates: start: 20220310
  5. FILGRASTIM [Concomitant]
     Active Substance: FILGRASTIM
     Indication: Neutropenia
     Dosage: 30 MIU
     Route: 058
     Dates: start: 20220106, end: 20220111
  6. FILGRASTIM [Concomitant]
     Active Substance: FILGRASTIM
     Dosage: 30 MIU
     Route: 058
     Dates: start: 20220113, end: 20220128
  7. FILGRASTIM [Concomitant]
     Active Substance: FILGRASTIM
     Dosage: 30 MIU
     Route: 058
     Dates: start: 20220124, end: 20220126
  8. FILGRASTIM [Concomitant]
     Active Substance: FILGRASTIM
     Dosage: 30 MIU
     Route: 058
     Dates: start: 20220204, end: 20220220
  9. PANTO [Concomitant]
     Indication: Gastrooesophageal reflux prophylaxis
     Route: 048
     Dates: start: 20210616

REACTIONS (2)
  - Anorectal infection [Not Recovered/Not Resolved]
  - Febrile neutropenia [Not Recovered/Not Resolved]

NARRATIVE: CASE EVENT DATE: 20220209
